FAERS Safety Report 5226143-0 (Version None)
Quarter: 2007Q1

REPORT INFORMATION
  Report Type: 
  Country: None (occurrence: None)
  Receive Date: 20070201
  Receipt Date: 20070124
  Transmission Date: 20070707
  Serious: Yes (Other)
  Sender: FDA-Public Use
  Company Number: CN-GLAXOSMITHKLINE-B0456609A

PATIENT
  Age: 36 Year
  Sex: Male

DRUGS (2)
  1. HEPTODIN [Suspect]
     Dosage: 100MG PER DAY
     Route: 048
     Dates: start: 20061219
  2. CHINESE TRADITIONAL MEDICINE [Concomitant]
     Route: 048

REACTIONS (3)
  - AXILLARY PAIN [None]
  - CHEST PAIN [None]
  - NEPHROLITHIASIS [None]
